FAERS Safety Report 13492169 (Version 3)
Quarter: 2017Q2

REPORT INFORMATION
  Report Type: Report from Study
  Country: DE (occurrence: DE)
  Receive Date: 20170427
  Receipt Date: 20170505
  Transmission Date: 20170830
  Serious: Yes (Death, Hospitalization)
  Sender: FDA-Public Use
  Company Number: DE-B.I. PHARMACEUTICALS,INC./RIDGEFIELD-2017-BI-016670

PATIENT
  Age: 65 Year
  Sex: Male
  Weight: 39 kg

DRUGS (14)
  1. BLINDED BIBF 1120 [Suspect]
     Active Substance: NINTEDANIB
     Indication: PLEURAL MESOTHELIOMA MALIGNANT
     Route: 048
     Dates: start: 20170316, end: 20170318
  2. BLINDED BIBF 1120 [Suspect]
     Active Substance: NINTEDANIB
     Route: 048
     Dates: start: 20170413
  3. VELMETIA [Concomitant]
     Active Substance: METFORMIN\SITAGLIPTIN
     Indication: DIABETES MELLITUS
     Dosage: STRENGTH: 500/1000MG
     Route: 048
     Dates: start: 2015
  4. PANTOZOL [Concomitant]
     Active Substance: PANTOPRAZOLE SODIUM
     Indication: PROPHYLAXIS
     Route: 048
     Dates: start: 201612
  5. BLINDED BIBF 1120 [Suspect]
     Active Substance: NINTEDANIB
     Route: 048
     Dates: start: 20170321, end: 20170403
  6. PEMETREXED. [Concomitant]
     Active Substance: PEMETREXED
     Indication: PLEURAL MESOTHELIOMA MALIGNANT
     Dosage: STRENGTH: 500MG/M2; TOTAL DAILY DOSE: 790MG
     Route: 042
     Dates: start: 20170315, end: 20170315
  7. CISPLATIN. [Concomitant]
     Active Substance: CISPLATIN
     Indication: PLEURAL MESOTHELIOMA MALIGNANT
     Dosage: STRENGTH: 75MG/M2; TOTAL DAILY DOSE: 118.50MG
     Route: 042
     Dates: start: 20170315, end: 20170315
  8. FOLACID [Concomitant]
     Indication: PROPHYLAXIS
     Route: 048
     Dates: start: 20170308
  9. FORAIR [Concomitant]
     Active Substance: FORMOTEROL FUMARATE
     Indication: DYSPNOEA
     Route: 055
     Dates: start: 2016
  10. RAMIPRIL. [Concomitant]
     Active Substance: RAMIPRIL
     Indication: HYPERTENSION
     Route: 048
     Dates: start: 2015
  11. CISPLATIN. [Concomitant]
     Active Substance: CISPLATIN
     Dosage: STRENGTH: 75MG/M2; TOTAL DAILY DOSE: 108.75MG
     Route: 042
     Dates: start: 20170412, end: 20170412
  12. BLINDED BIBF 1120 [Suspect]
     Active Substance: NINTEDANIB
     Route: 048
     Dates: start: 20170407, end: 20170411
  13. PEMETREXED. [Concomitant]
     Active Substance: PEMETREXED
     Dosage: STRENGTH: 500MG/M2; TOTAL DAILY DOSE: 725MG
     Route: 042
     Dates: start: 20170412, end: 20170412
  14. ATORVASTATIN [Concomitant]
     Active Substance: ATORVASTATIN
     Indication: HYPERCHOLESTEROLAEMIA
     Route: 048
     Dates: start: 2015

REACTIONS (18)
  - General physical health deterioration [Recovered/Resolved]
  - Infection [Unknown]
  - Decreased appetite [Recovered/Resolved]
  - Diarrhoea [Recovered/Resolved]
  - Weight decreased [Not Recovered/Not Resolved]
  - Pyrexia [Not Recovered/Not Resolved]
  - Blood magnesium decreased [Not Recovered/Not Resolved]
  - Dyspnoea [Not Recovered/Not Resolved]
  - Vomiting [Recovered/Resolved]
  - Pleural effusion [Recovered/Resolved]
  - Blood potassium decreased [Recovered/Resolved]
  - Supraventricular tachycardia [Recovered/Resolved]
  - Nausea [Not Recovered/Not Resolved]
  - Blood sodium decreased [Not Recovered/Not Resolved]
  - Infection [Recovered/Resolved]
  - Hepatic enzyme increased [Recovered/Resolved]
  - Pneumonia [Fatal]
  - Hypokalaemia [Recovered/Resolved]

NARRATIVE: CASE EVENT DATE: 20170316
